FAERS Safety Report 25593733 (Version 3)
Quarter: 2025Q3

REPORT INFORMATION
  Report Type: Spontaneous
  Country: US (occurrence: US)
  Receive Date: 20250723
  Receipt Date: 20250923
  Transmission Date: 20251020
  Serious: Yes (Hospitalization, Other)
  Sender: ABBVIE
  Company Number: US-ABBVIE-6377329

PATIENT
  Age: 1 Year
  Sex: Male
  Weight: 7.9 kg

DRUGS (2)
  1. RINVOQ [Suspect]
     Active Substance: UPADACITINIB
     Indication: Paternal exposure timing unspecified
     Route: 064
  2. RINVOQ [Suspect]
     Active Substance: UPADACITINIB
     Indication: Paternal exposure timing unspecified
     Route: 063

REACTIONS (15)
  - Foetal growth restriction [Recovered/Resolved]
  - Foetal exposure during pregnancy [Unknown]
  - Abdominal hernia [Not Recovered/Not Resolved]
  - Food allergy [Unknown]
  - Exposure via breast milk [Unknown]
  - Paternal exposure during pregnancy [Unknown]
  - Inguinal hernia [Recovered/Resolved]
  - Umbilical hernia [Not Recovered/Not Resolved]
  - Testicular disorder [Recovered/Resolved]
  - Vomiting [Recovered/Resolved]
  - Dry skin [Not Recovered/Not Resolved]
  - Urine output decreased [Recovered/Resolved]
  - Faecal volume decreased [Recovered/Resolved]
  - Testicular disorder [Recovered/Resolved]
  - Eczema [Unknown]

NARRATIVE: CASE EVENT DATE: 20240101
